FAERS Safety Report 23162186 (Version 2)
Quarter: 2023Q4

REPORT INFORMATION
  Report Type: Spontaneous
  Country: IT (occurrence: IT)
  Receive Date: 20231109
  Receipt Date: 20231115
  Transmission Date: 20240110
  Serious: Yes (Hospitalization)
  Sender: FDA-Public Use
  Company Number: None

PATIENT
  Age: 51 Year
  Sex: Male
  Weight: 68 kg

DRUGS (8)
  1. PYRAZINAMIDE [Suspect]
     Active Substance: PYRAZINAMIDE
     Indication: Tuberculosis
     Dosage: 2000 MG, QD
     Route: 048
     Dates: start: 20231005, end: 20231011
  2. RIFADIN [Suspect]
     Active Substance: RIFAMPIN
     Indication: Tuberculosis
     Dosage: 600 MG, QD
     Route: 048
     Dates: start: 20231005, end: 20231011
  3. PYRIDOXINE [Suspect]
     Active Substance: PYRIDOXINE
     Indication: Supplementation therapy
     Dosage: 300 MG, QD
     Route: 048
     Dates: start: 20231009, end: 20231011
  4. ETHAMBUTOL HYDROCHLORIDE [Suspect]
     Active Substance: ETHAMBUTOL HYDROCHLORIDE
     Indication: Tuberculosis
     Dosage: 1200 MG, QD
     Route: 048
     Dates: start: 20231005, end: 20231011
  5. ISONIAZID [Suspect]
     Active Substance: ISONIAZID
     Indication: Tuberculosis
     Dosage: 300 MG, QD
     Route: 048
     Dates: start: 20231005, end: 20231011
  6. INSULIN GLARGINE [Concomitant]
     Active Substance: INSULIN GLARGINE
     Indication: Diabetes mellitus
     Dosage: 4 IU (4 IU AT MAIN MEALS)
     Route: 058
  7. INSULIN GLARGINE [Concomitant]
     Active Substance: INSULIN GLARGINE
     Indication: Diabetes mellitus
     Dosage: 8 IU, QD,  (IN THE EVENING)
     Route: 058
  8. INSULIN GLARGINE [Concomitant]
     Active Substance: INSULIN GLARGINE
     Indication: Diabetes mellitus
     Dosage: 8 IU IN THE EVENING.
     Route: 058

REACTIONS (1)
  - Rash maculo-papular [Recovered/Resolved]

NARRATIVE: CASE EVENT DATE: 20231011
